FAERS Safety Report 22630581 (Version 3)
Quarter: 2024Q4

REPORT INFORMATION
  Report Type: Spontaneous
  Country: US (occurrence: US)
  Receive Date: 20230622
  Receipt Date: 20241202
  Transmission Date: 20250115
  Serious: No
  Sender: PFIZER
  Company Number: US-PFIZER INC-PV202300105934

PATIENT
  Age: 51 Year
  Sex: Female

DRUGS (4)
  1. IBRANCE [Suspect]
     Active Substance: PALBOCICLIB
     Indication: Breast cancer female
     Dosage: 75 MG, (TAKE 1 TABLET DAILY DAYS 1-21 OF 28 DAY CYCLE)
     Route: 048
  2. NEURONTIN [Concomitant]
     Active Substance: GABAPENTIN
     Dosage: 100 MG (TAKE 1-2 CAPSULES BY MOUTH AS DIRECTED FOR 8 DAYS)
     Route: 048
  3. NEURONTIN [Concomitant]
     Active Substance: GABAPENTIN
     Dosage: 200 MG (TAKE 200 MG HS FOR 4DAYS)
     Route: 048
  4. NEURONTIN [Concomitant]
     Active Substance: GABAPENTIN
     Dosage: 100 MG (THEN TAKE 100MG HS FOR 4 DAYS, THEN STOP)
     Route: 048

REACTIONS (1)
  - Brain fog [Unknown]
